FAERS Safety Report 5010630-4 (Version None)
Quarter: 2006Q2

REPORT INFORMATION
  Report Type: 
  Country: None (occurrence: None)
  Receive Date: 20060524
  Receipt Date: 20060524
  Transmission Date: 20061013
  Serious: Yes (Disabling)
  Sender: FDA-Public Use
  Company Number: None

PATIENT
  Sex: Male

DRUGS (9)
  1. LIPITOR [Suspect]
     Indication: HYPERCHOLESTEROLAEMIA
     Dosage: 20 MG QD
     Dates: start: 19970101
  2. POTASSIUM [Concomitant]
  3. AVODART [Concomitant]
  4. ATENOLOL [Concomitant]
  5. ASPIRIN [Concomitant]
  6. HYDROCHLOROTHIAZIDE [Concomitant]
  7. LYRICA [Concomitant]
  8. PREVACID [Concomitant]
  9. MULTI-VITAMIN [Concomitant]

REACTIONS (2)
  - NEUROMA [None]
  - NEUROPATHY PERIPHERAL [None]
